FAERS Safety Report 5580735-8 (Version None)
Quarter: 2008Q1

REPORT INFORMATION
  Report Type: 
  Country: None (occurrence: None)
  Receive Date: 20080103
  Receipt Date: 20071221
  Transmission Date: 20080703
  Serious: Yes (Death, Hospitalization)
  Sender: FDA-Public Use
  Company Number: TW-GENENTECH-253567

PATIENT
  Sex: Male
  Weight: 165 kg

DRUGS (6)
  1. AVASTIN [Suspect]
     Indication: COLORECTAL CANCER METASTATIC
     Dosage: 300 MG, UNK
     Route: 042
     Dates: start: 20070919
  2. IRINOTECAN [Concomitant]
     Indication: DRUG USE FOR UNKNOWN INDICATION
     Dosage: UNK, UNK
     Dates: start: 20070919
  3. NOVABAN [Concomitant]
     Indication: DRUG USE FOR UNKNOWN INDICATION
     Dates: start: 20070919
  4. SODIUM CHLORIDE 0.9% [Concomitant]
     Indication: DRUG USE FOR UNKNOWN INDICATION
     Dates: start: 20070919
  5. ATROPINE [Concomitant]
     Indication: DRUG USE FOR UNKNOWN INDICATION
     Dates: start: 20070919
  6. DEXAMETHASONE TAB [Concomitant]
     Indication: DRUG USE FOR UNKNOWN INDICATION
     Dates: start: 20070919

REACTIONS (2)
  - ISCHAEMIC STROKE [None]
  - MULTI-ORGAN FAILURE [None]
